FAERS Safety Report 7151600-X (Version None)
Quarter: 2010Q4

REPORT INFORMATION
  Report Type: 
  Country: None (occurrence: None)
  Receive Date: 20101210
  Receipt Date: 20101207
  Transmission Date: 20110411
  Serious: Yes (Other)
  Sender: FDA-Public Use
  Company Number: CHPA2010US18767

PATIENT
  Sex: Female

DRUGS (8)
  1. EXCEDRIN (MIGRAINE) [Suspect]
     Indication: HEADACHE
     Dosage: UNK DF, UNK
     Route: 048
  2. CLARITIN-D [Suspect]
     Indication: ALLERGY TO CHEMICALS
     Dosage: UNK, UNK
     Route: 048
     Dates: start: 20101118
  3. CLARITIN-D [Suspect]
     Indication: COUGH
  4. CLARITIN-D [Suspect]
     Indication: DIZZINESS
  5. MUCINEX DM [Suspect]
     Indication: ALLERGY TO CHEMICALS
     Dosage: UNK DF, UNK
     Route: 048
  6. MUCINEX DM [Suspect]
     Indication: COUGH
  7. MUCINEX DM [Suspect]
     Indication: DIZZINESS
  8. ACTONEL [Concomitant]
     Dosage: UNK, UNK
     Route: 048

REACTIONS (1)
  - PALPITATIONS [None]
